FAERS Safety Report 8895711 (Version 1)
Quarter: 2012Q4

REPORT INFORMATION
  Report Type: 
  Country: AU (occurrence: AU)
  Receive Date: 20121107
  Receipt Date: 20121107
  Transmission Date: 20130627
  Serious: Yes (Hospitalization)
  Sender: FDA-Public Use
  Company Number: AU-B.I. PHARMACEUTICALS,INC./RIDGEFIELD-2012-AU-01838AU

PATIENT
  Age: 9 None
  Sex: Female

DRUGS (2)
  1. PRADAXA [Suspect]
     Indication: ATRIAL FIBRILLATION
     Dosage: 300 mg
  2. SOTALOL [Concomitant]
     Indication: ATRIAL FIBRILLATION

REACTIONS (2)
  - Haematoma [Unknown]
  - Fall [Unknown]
